FAERS Safety Report 12625991 (Version 1)
Quarter: 2016Q3

REPORT INFORMATION
  Report Type: Report from Study
  Country: US (occurrence: US)
  Receive Date: 20160805
  Receipt Date: 20160805
  Transmission Date: 20161109
  Serious: Yes (Death, Other)
  Sender: FDA-Public Use
  Company Number: US-GILEAD-2016-0226703

PATIENT
  Age: 75 Year
  Sex: Male

DRUGS (16)
  1. PROBIOTIC                          /06395501/ [Concomitant]
     Active Substance: BIFIDOBACTERIUM ANIMALIS SUBSP. LACTIS
  2. NASONEX [Concomitant]
     Active Substance: MOMETASONE FUROATE
  3. LOSARTAN. [Concomitant]
     Active Substance: LOSARTAN
  4. SERTRALINE [Concomitant]
     Active Substance: SERTRALINE HYDROCHLORIDE
  5. AMBRISENTAN [Suspect]
     Active Substance: AMBRISENTAN
     Indication: PULMONARY ARTERIAL HYPERTENSION
     Dosage: 10 MG, QD
     Route: 065
     Dates: start: 20130720, end: 20160719
  6. ASACOL [Concomitant]
     Active Substance: MESALAMINE
  7. DEXILANT [Concomitant]
     Active Substance: DEXLANSOPRAZOLE
  8. ALVESCO [Concomitant]
     Active Substance: CICLESONIDE
  9. CARVEDILOL. [Concomitant]
     Active Substance: CARVEDILOL
  10. OCUVITE [Concomitant]
     Active Substance: VITAMINS
  11. ASPIRIN                            /00002701/ [Concomitant]
     Active Substance: ASPIRIN
  12. FORADIL [Concomitant]
     Active Substance: FORMOTEROL FUMARATE
  13. FENOFIBRATE. [Concomitant]
     Active Substance: FENOFIBRATE
  14. LIPITOR [Concomitant]
     Active Substance: ATORVASTATIN CALCIUM
  15. ZYRTEC [Concomitant]
     Active Substance: CETIRIZINE HYDROCHLORIDE
  16. SINGULAIR [Concomitant]
     Active Substance: MONTELUKAST SODIUM

REACTIONS (1)
  - Death [Fatal]

NARRATIVE: CASE EVENT DATE: 20160719
